FAERS Safety Report 16217766 (Version 1)
Quarter: 2019Q2

REPORT INFORMATION
  Report Type: Spontaneous
  Country: US (occurrence: US)
  Receive Date: 20190317
  Receipt Date: 20190317
  Transmission Date: 20190711
  Serious: Yes (Hospitalization)
  Sender: FDA-Public Use
  Company Number: None

PATIENT
  Age: 68 Year
  Sex: Male
  Weight: 56.5 kg

DRUGS (2)
  1. PAZOPANIB [Suspect]
     Active Substance: PAZOPANIB
     Dates: end: 20190310
  2. VANCOMYCIN [Concomitant]
     Active Substance: VANCOMYCIN
     Dates: end: 20190301

REACTIONS (8)
  - Presyncope [None]
  - Asthenia [None]
  - Blood lactic acid increased [None]
  - Clostridium difficile colitis [None]
  - Diarrhoea [None]
  - Fall [None]
  - Body temperature increased [None]
  - Nausea [None]

NARRATIVE: CASE EVENT DATE: 20190310
